FAERS Safety Report 6349479-9 (Version None)
Quarter: 2009Q3

REPORT INFORMATION
  Report Type: 
  Country: None (occurrence: None)
  Receive Date: 20090911
  Receipt Date: 20090901
  Transmission Date: 20100115
  Serious: Yes (Other)
  Sender: FDA-Public Use
  Company Number: US-PFIZER INC-2009265362

PATIENT
  Sex: Female
  Weight: 74.376 kg

DRUGS (1)
  1. LIPITOR [Suspect]
     Indication: BLOOD CHOLESTEROL INCREASED
     Route: 048
     Dates: start: 20080101, end: 20090301

REACTIONS (4)
  - MUSCULOSKELETAL DISORDER [None]
  - MYALGIA [None]
  - THYROID NEOPLASM [None]
  - WRONG TECHNIQUE IN DRUG USAGE PROCESS [None]
